FAERS Safety Report 12397053 (Version 1)
Quarter: 2016Q2

REPORT INFORMATION
  Report Type: Spontaneous
  Country: US (occurrence: None)
  Receive Date: 20160523
  Receipt Date: 20160523
  Transmission Date: 20160815
  Serious: Yes (Life-Threatening, Disabling, Other)
  Sender: FDA-Public Use
  Company Number: None

PATIENT
  Age: 56 Year
  Sex: Male
  Weight: 63.5 kg

DRUGS (4)
  1. CEPHALEXIN. [Suspect]
     Active Substance: CEPHALEXIN
     Indication: POST PROCEDURAL INFECTION
     Route: 048
     Dates: start: 20130614, end: 20130617
  2. CEPHALEXIN. [Suspect]
     Active Substance: CEPHALEXIN
     Indication: PROCEDURAL PAIN
     Route: 048
     Dates: start: 20130614, end: 20130617
  3. HYDROCODONE BITARTRATE AND ACETAMINOPHEN [Suspect]
     Active Substance: ACETAMINOPHEN\HYDROCODONE BITARTRATE
     Indication: PROCEDURAL PAIN
     Route: 048
     Dates: start: 20130614, end: 20130617
  4. HYDROCODONE BITARTRATE AND ACETAMINOPHEN [Suspect]
     Active Substance: ACETAMINOPHEN\HYDROCODONE BITARTRATE
     Indication: POST PROCEDURAL INFECTION
     Route: 048
     Dates: start: 20130614, end: 20130617

REACTIONS (2)
  - Fall [None]
  - Prescribed overdose [None]

NARRATIVE: CASE EVENT DATE: 20130618
